FAERS Safety Report 7166571-X (Version None)
Quarter: 2010Q4

REPORT INFORMATION
  Report Type: 
  Country: None (occurrence: None)
  Receive Date: 20101216
  Receipt Date: 20101209
  Transmission Date: 20110411
  Serious: Yes (Other)
  Sender: FDA-Public Use
  Company Number: US-PERRIGO-10US015036

PATIENT
  Sex: Male
  Weight: 31.746 kg

DRUGS (1)
  1. CHILDREN'S IBUPROFEN [Suspect]
     Indication: MALAISE
     Dosage: 200 MG, SINGLE
     Route: 048
     Dates: start: 20101117, end: 20101117

REACTIONS (3)
  - CHEST DISCOMFORT [None]
  - HYPERSENSITIVITY [None]
  - LIP SWELLING [None]
